FAERS Safety Report 9953653 (Version 1)
Quarter: 2014Q1

REPORT INFORMATION
  Report Type: Report from Study
  Country: US (occurrence: US)
  Receive Date: 20140304
  Receipt Date: 20140304
  Transmission Date: 20141002
  Serious: No
  Sender: FDA-Public Use
  Company Number: US-ABBVIE-13P-163-1080362-00

PATIENT
  Age: 33 Year
  Sex: Female

DRUGS (8)
  1. HUMIRA [Suspect]
     Indication: CROHN^S DISEASE
     Dates: start: 20121115
  2. IMURAN [Concomitant]
     Indication: CROHN^S DISEASE
  3. SYNTHROID [Concomitant]
     Indication: HYPOTHYROIDISM
  4. BIRTH CONTROL PILL [Concomitant]
     Indication: CONTRACEPTION
  5. CALCIUM [Concomitant]
     Indication: PRODUCT USED FOR UNKNOWN INDICATION
  6. MUTLIVITAMIN [Concomitant]
     Indication: PRODUCT USED FOR UNKNOWN INDICATION
  7. ZOFRAN [Concomitant]
     Indication: MIGRAINE
  8. NAPROSYN [Concomitant]
     Indication: MIGRAINE

REACTIONS (3)
  - Cough [Unknown]
  - Anxiety [Unknown]
  - Sinus headache [Not Recovered/Not Resolved]
